FAERS Safety Report 5186838-4 (Version None)
Quarter: 2006Q4

REPORT INFORMATION
  Report Type: 
  Country: None (occurrence: None)
  Receive Date: 20061213
  Receipt Date: 20061204
  Transmission Date: 20070319
  Serious: Yes (Other)
  Sender: FDA-Public Use
  Company Number: 2006105920

PATIENT
  Age: 15 Year
  Sex: Male
  Weight: 58.9676 kg

DRUGS (1)
  1. BENADRYL [Suspect]
     Indication: NASAL CONGESTION
     Dosage: 2 TABLETS ONCE, ORAL
     Route: 048
     Dates: start: 20060829, end: 20060829

REACTIONS (8)
  - CRYING [None]
  - EYE IRRITATION [None]
  - FORMICATION [None]
  - HALLUCINATION, AUDITORY [None]
  - HALLUCINATION, VISUAL [None]
  - INSOMNIA [None]
  - TREMOR [None]
  - VISION BLURRED [None]
